FAERS Safety Report 18281531 (Version 6)
Quarter: 2021Q3

REPORT INFORMATION
  Report Type: Report from Study
  Country: JP (occurrence: JP)
  Receive Date: 20200918
  Receipt Date: 20210811
  Transmission Date: 20211014
  Serious: Yes (Hospitalization, Other)
  Sender: FDA-Public Use
  Company Number: NVSJ2020JP008760

PATIENT
  Age: 1 Year
  Sex: Male
  Weight: 10.5 kg

DRUGS (4)
  1. PREDONINE [Suspect]
     Active Substance: PREDNISOLONE
     Indication: PRODUCT USED FOR UNKNOWN INDICATION
     Dosage: 1 MG/KG
     Route: 048
     Dates: start: 20200906, end: 20201005
  2. PREDONINE [Suspect]
     Active Substance: PREDNISOLONE
     Dosage: 0.25 MG/KG
     Route: 048
     Dates: start: 20201020, end: 20201102
  3. ZOLGENSMA [Suspect]
     Active Substance: ONASEMNOGENE ABEPARVOVEC-XIOI
     Indication: SPINAL MUSCULAR ATROPHY
     Dosage: 52.3 ML, ONCE/SINGLE
     Route: 042
     Dates: start: 20200907, end: 20200907
  4. PREDONINE [Suspect]
     Active Substance: PREDNISOLONE
     Dosage: 0.5 MG/KG
     Route: 048
     Dates: start: 20201006, end: 20201019

REACTIONS (6)
  - Thrombocytopenia [Recovered/Resolved]
  - Respiratory syncytial virus infection [Unknown]
  - Aspartate aminotransferase increased [Not Recovered/Not Resolved]
  - Vomiting [Recovered/Resolved]
  - Pyrexia [Recovered/Resolved]
  - Pneumonia [Not Recovered/Not Resolved]

NARRATIVE: CASE EVENT DATE: 20200908
